FAERS Safety Report 18546577 (Version 1)
Quarter: 2020Q4

REPORT INFORMATION
  Report Type: Spontaneous
  Country: GB (occurrence: GB)
  Receive Date: 20201125
  Receipt Date: 20201125
  Transmission Date: 20210114
  Serious: Yes (Hospitalization)
  Sender: FDA-Public Use
  Company Number: GB-TEVA-2020-GB-1851938

PATIENT
  Age: 68 Year
  Sex: Male

DRUGS (14)
  1. SPIRONOLACTONE. [Suspect]
     Active Substance: SPIRONOLACTONE
     Dosage: 12.5MG
     Route: 048
     Dates: end: 20201013
  2. FLUOXETINE [Suspect]
     Active Substance: FLUOXETINE HYDROCHLORIDE
     Dosage: 20MG
     Route: 048
     Dates: end: 20201013
  3. FUROSEMIDE. [Suspect]
     Active Substance: FUROSEMIDE
     Dosage: 40 MILLIGRAM DAILY; IN THE MORNING,40MG
     Route: 048
     Dates: end: 20201013
  4. SALBUTAMOL [Concomitant]
     Active Substance: ALBUTEROL
     Dosage: 1-2 PUFFS PRN.
     Route: 055
  5. ATORVASTATIN [Concomitant]
     Active Substance: ATORVASTATIN
     Dosage: 80 MILLIGRAM DAILY; AT NIGHT, 80MG
     Route: 045
  6. DIGOXIN. [Concomitant]
     Active Substance: DIGOXIN
     Dosage: 187.5MCG
     Route: 048
  7. OMEPRAZOLE. [Concomitant]
     Active Substance: OMEPRAZOLE
     Dosage: 20MG
     Route: 048
  8. BISOPROLOL [Suspect]
     Active Substance: BISOPROLOL
     Dosage: 2.5MG
     Route: 048
     Dates: end: 20201013
  9. CARBOCISTEINE [Concomitant]
     Active Substance: CARBOCYSTEINE
     Dosage: 1125MG
     Route: 048
  10. LISINOPRIL. [Suspect]
     Active Substance: LISINOPRIL
     Dosage: 10MG
     Route: 048
     Dates: end: 20201013
  11. COCODAMOL [Concomitant]
     Active Substance: ACETAMINOPHEN\CODEINE PHOSPHATE
     Dosage: 15/500MG 1-2 FOUR TIMES DAILY AS REQUIRED.
     Route: 048
  12. GABAPENTIN. [Concomitant]
     Active Substance: GABAPENTIN
     Dosage: 300MG
     Route: 048
  13. TRELEGY ELLIPTA [Concomitant]
     Active Substance: FLUTICASONE FUROATE\UMECLIDINIUM BROMIDE\VILANTEROL TRIFENATATE
     Dosage: TRELEGY ELLIPTA 92MICROGRAMS/DOSE / 55MICROGRAMS/DOSE / 22MICROGRAMS/D, 1 DOSAGE FORMS
     Route: 050
  14. APIXABAN [Concomitant]
     Active Substance: APIXABAN
     Dosage: 10MG
     Route: 048

REACTIONS (5)
  - Orthostatic hypotension [Recovered/Resolved]
  - Hypophagia [Unknown]
  - Acute kidney injury [Recovered/Resolved]
  - Condition aggravated [Unknown]
  - Dehydration [Unknown]

NARRATIVE: CASE EVENT DATE: 202010
